FAERS Safety Report 5010776-0 (Version None)
Quarter: 2006Q2

REPORT INFORMATION
  Report Type: 
  Country: None (occurrence: None)
  Receive Date: 20060525
  Receipt Date: 20060508
  Transmission Date: 20061013
  Serious: Yes (Other)
  Sender: FDA-Public Use
  Company Number: JP-ROCHE-447714

PATIENT
  Age: 65 Year
  Sex: Male

DRUGS (1)
  1. CELLCEPT [Suspect]
     Route: 048
     Dates: start: 20060502, end: 20060502

REACTIONS (4)
  - ANAEMIA [None]
  - DYSURIA [None]
  - OVERDOSE [None]
  - WHITE BLOOD CELL COUNT DECREASED [None]
